FAERS Safety Report 4576223-8 (Version None)
Quarter: 2005Q1

REPORT INFORMATION
  Report Type: 
  Country: None (occurrence: None)
  Receive Date: 20050119
  Receipt Date: 20041027
  Transmission Date: 20050727
  Serious: Yes (Other)
  Sender: FDA-Public Use
  Company Number: A03200403624

PATIENT
  Age: 65 Year
  Sex: Female
  Weight: 68.0396 kg

DRUGS (8)
  1. PLAVIX [Suspect]
     Indication: STENT PLACEMENT
     Dosage: 75 MG QD - ORAL
     Route: 048
     Dates: start: 20040722
  2. METOPROLOL SUCCINATE [Concomitant]
     Indication: CORONARY ARTERY OCCLUSION
  3. VALSARTAN [Concomitant]
  4. ACETYLSALICYLIC ACID [Concomitant]
  5. FENOFIBRATE [Concomitant]
  6. ATORVASTATIN [Concomitant]
  7. LEVOTHYROXINE SODIUM [Concomitant]
  8. ESTRADIOL [Concomitant]

REACTIONS (6)
  - ABDOMINAL DISTENSION [None]
  - ABDOMINAL PAIN UPPER [None]
  - INFECTION [None]
  - LOSS OF CONSCIOUSNESS [None]
  - PAIN [None]
  - PROCTITIS [None]
